FAERS Safety Report 5475992-2 (Version None)
Quarter: 2007Q4

REPORT INFORMATION
  Report Type: 
  Country: None (occurrence: None)
  Receive Date: 20071003
  Receipt Date: 20070924
  Transmission Date: 20080405
  Serious: Yes (Life-Threatening, Hospitalization, Disabling, Other)
  Sender: FDA-Public Use
  Company Number: US-MERCK-0709USA02350

PATIENT
  Age: 56 Year
  Sex: Female
  Weight: 64 kg

DRUGS (6)
  1. MAXALT-MLT [Suspect]
     Indication: MIGRAINE
     Route: 048
     Dates: start: 20070306, end: 20070901
  2. MAXALT-MLT [Suspect]
     Route: 048
     Dates: start: 20070101, end: 20070101
  3. ALLEGRA [Concomitant]
     Indication: RHINITIS ALLERGIC
     Route: 048
  4. MOBIC [Concomitant]
     Indication: BACK PAIN
     Route: 048
  5. VIVELLE-DOT [Concomitant]
     Indication: HORMONE REPLACEMENT THERAPY
     Route: 061
  6. NASACORT [Concomitant]
     Indication: RHINITIS ALLERGIC
     Route: 065

REACTIONS (3)
  - CARDIAC ARREST [None]
  - DRUG INEFFECTIVE [None]
  - MYOCARDIAL INFARCTION [None]
